FAERS Safety Report 9433827 (Version 1)
Quarter: 2013Q3

REPORT INFORMATION
  Report Type: Spontaneous
  Country: DE (occurrence: DE)
  Receive Date: 20130731
  Receipt Date: 20130731
  Transmission Date: 20140515
  Serious: Yes (Hospitalization)
  Sender: FDA-Public Use
  Company Number: PHHY2013DE044731

PATIENT
  Sex: Female

DRUGS (4)
  1. GLIVEC [Suspect]
     Indication: GASTROINTESTINAL STROMAL TUMOUR
     Dosage: 400 MG, PER DAY
     Route: 048
     Dates: start: 201301
  2. GLIVEC [Suspect]
     Dosage: 600 MG, PER DAY
     Route: 048
  3. GLIVEC [Suspect]
     Dosage: 400 MG, PER DAY
     Route: 048
  4. GLIVEC [Suspect]
     Dosage: 600 MG, PER DAY
     Route: 048

REACTIONS (2)
  - Gallbladder pain [Recovered/Resolved]
  - Periorbital oedema [Recovering/Resolving]
